FAERS Safety Report 4970168-7 (Version None)
Quarter: 2006Q2

REPORT INFORMATION
  Report Type: 
  Country: None (occurrence: None)
  Receive Date: 20060406
  Receipt Date: 20060317
  Transmission Date: 20061013
  Serious: Yes (Death, Hospitalization, Other)
  Sender: FDA-Public Use
  Company Number: USA0510112254

PATIENT
  Age: 79 Year
  Sex: Male

DRUGS (4)
  1. FORTEO [Suspect]
     Indication: OSTEOPOROSIS
     Dates: start: 20050901, end: 20050901
  2. DAILY VITAMINS [Concomitant]
  3. MONOPRIL [Concomitant]
  4. FORTEO [Concomitant]

REACTIONS (3)
  - OEDEMA PERIPHERAL [None]
  - PHARMACEUTICAL PRODUCT COMPLAINT [None]
  - THROMBOSIS [None]
